FAERS Safety Report 4479970-1 (Version None)
Quarter: 2004Q4

REPORT INFORMATION
  Report Type: 
  Country: None (occurrence: None)
  Receive Date: 20041018
  Receipt Date: 20040930
  Transmission Date: 20050328
  Serious: Yes (Hospitalization)
  Sender: FDA-Public Use
  Company Number: DSA_24857_2004

PATIENT
  Age: 0 Day
  Sex: Female
  Weight: 4 kg

DRUGS (2)
  1. LORAZEPAM [Suspect]
     Dates: end: 20040809
  2. ZYPREXA [Suspect]
     Dates: end: 20040808

REACTIONS (3)
  - DRUG EXPOSURE DURING PREGNANCY [None]
  - LABORATORY TEST ABNORMAL [None]
  - NEONATAL APNOEIC ATTACK [None]
